FAERS Safety Report 12100130 (Version 2)
Quarter: 2016Q1

REPORT INFORMATION
  Report Type: Spontaneous
  Country: SE (occurrence: SE)
  Receive Date: 20160222
  Receipt Date: 20160301
  Transmission Date: 20160526
  Serious: Yes (Other)
  Sender: FDA-Public Use
  Company Number: CHPA2016SE002027

PATIENT
  Sex: Female

DRUGS (1)
  1. TAVEGYL [Suspect]
     Active Substance: CLEMASTINE FUMARATE
     Indication: ASTHMA
     Dosage: 1 DF, BID
     Route: 065

REACTIONS (3)
  - Therapeutic response unexpected [Unknown]
  - Product use issue [Unknown]
  - Asthma [Unknown]
